FAERS Safety Report 8579883-X (Version None)
Quarter: 2012Q3

REPORT INFORMATION
  Report Type: 
  Country: None (occurrence: None)
  Receive Date: 20120808
  Receipt Date: 20120727
  Transmission Date: 20120928
  Serious: Yes (Hospitalization)
  Sender: FDA-Public Use
  Company Number: IT-CELGENEUS-083-50794-12073054

PATIENT
  Sex: Male

DRUGS (1)
  1. VIDAZA [Suspect]
     Route: 058
     Dates: start: 20110207, end: 20110623

REACTIONS (1)
  - INTERVERTEBRAL DISCITIS [None]
